FAERS Safety Report 16151778 (Version 2)
Quarter: 2019Q2

REPORT INFORMATION
  Report Type: Spontaneous
  Country: US (occurrence: US)
  Receive Date: 20190403
  Receipt Date: 20190520
  Transmission Date: 20190711
  Serious: No
  Sender: FDA-Public Use
  Company Number: US-ASTRAZENECA-2019SE38747

PATIENT
  Sex: Male
  Weight: 111.1 kg

DRUGS (1)
  1. SYMBICORT [Suspect]
     Active Substance: BUDESONIDE\FORMOTEROL FUMARATE DIHYDRATE
     Indication: ASTHMA
     Dosage: 80/4.5 MCG FOR ABOUT 3 OR 4 YEARS, UNKNOWN UNKNOWN
     Route: 055

REACTIONS (6)
  - Chest discomfort [Unknown]
  - Wheezing [Unknown]
  - Off label use [Unknown]
  - Oropharyngeal pain [Recovered/Resolved]
  - Intentional product misuse [Unknown]
  - Device issue [Unknown]
